FAERS Safety Report 9220693 (Version 5)
Quarter: 2016Q2

REPORT INFORMATION
  Report Type: Spontaneous
  Country: US (occurrence: US)
  Receive Date: 20130409
  Receipt Date: 20160412
  Transmission Date: 20160815
  Serious: Yes (Hospitalization)
  Sender: FDA-Public Use
  Company Number: US-009507513-1304USA001014

PATIENT
  Sex: Male

DRUGS (4)
  1. PROPECIA [Suspect]
     Active Substance: FINASTERIDE
     Indication: ANDROGENETIC ALOPECIA
     Dosage: 1 MG, QD
     Route: 048
     Dates: start: 199805, end: 200305
  2. FINASTERIDE. [Suspect]
     Active Substance: FINASTERIDE
     Indication: ANDROGENETIC ALOPECIA
     Dosage: 1/4 OF 5MG, QD
     Route: 048
     Dates: start: 200607, end: 201201
  3. FINASTERIDE. [Suspect]
     Active Substance: FINASTERIDE
     Dosage: 5 MG, UNK
     Route: 048
     Dates: start: 20070806, end: 20100208
  4. PROSCAR [Suspect]
     Active Substance: FINASTERIDE
     Indication: ANDROGENETIC ALOPECIA
     Dosage: 1/4 OF 5MG, QD
     Route: 048
     Dates: start: 200305

REACTIONS (16)
  - Cognitive disorder [Unknown]
  - Wrong technique in product usage process [Unknown]
  - Depression [Unknown]
  - Drug administration error [Unknown]
  - Infertility male [Unknown]
  - Ejaculation disorder [Unknown]
  - Bunion operation [Unknown]
  - Semen volume decreased [Unknown]
  - Libido decreased [Not Recovered/Not Resolved]
  - Appendicectomy [Unknown]
  - Urogenital atrophy [Unknown]
  - Erectile dysfunction [Not Recovered/Not Resolved]
  - Sexual dysfunction [Unknown]
  - Orgasm abnormal [Unknown]
  - Anxiety [Unknown]
  - Upper respiratory tract infection [Unknown]

NARRATIVE: CASE EVENT DATE: 1999
